FAERS Safety Report 16793182 (Version 1)
Quarter: 2019Q3

REPORT INFORMATION
  Report Type: Spontaneous
  Country: US (occurrence: US)
  Receive Date: 20190911
  Receipt Date: 20190911
  Transmission Date: 20191005
  Serious: No
  Sender: FDA-Public Use
  Company Number: US-HETERO-HET2019US01236

PATIENT
  Sex: Male

DRUGS (1)
  1. DULOXETINE. [Suspect]
     Active Substance: DULOXETINE
     Indication: BACK DISORDER
     Dosage: 30 MG
     Route: 065

REACTIONS (4)
  - Somnolence [Unknown]
  - Night sweats [Unknown]
  - Chills [Unknown]
  - Nasopharyngitis [Unknown]
